FAERS Safety Report 7442399-8 (Version None)
Quarter: 2011Q2

REPORT INFORMATION
  Report Type: 
  Country: None (occurrence: None)
  Receive Date: 20110428
  Receipt Date: 20110418
  Transmission Date: 20111010
  Serious: Yes (Other)
  Sender: FDA-Public Use
  Company Number: GB-JNJFOC-20110207056

PATIENT
  Age: 44 Year
  Sex: Male

DRUGS (9)
  1. QUETIAPINE [Suspect]
     Indication: PSYCHOTIC DISORDER
     Route: 065
  2. METFORMIN [Concomitant]
     Indication: TYPE 2 DIABETES MELLITUS
     Route: 065
  3. RAMIPRIL [Concomitant]
     Indication: HYPERTENSION
     Route: 065
  4. AMLODIPINE [Concomitant]
     Indication: HYPERTENSION
     Route: 065
  5. GLICLAZIDE [Concomitant]
     Indication: DIABETES MELLITUS
     Route: 065
  6. RISPERDAL [Suspect]
     Indication: PSYCHOTIC DISORDER
     Route: 048
  7. ZOPICLONE [Concomitant]
     Indication: INSOMNIA
     Route: 065
  8. SILDENAFIL CITRATE [Concomitant]
     Indication: ERECTILE DYSFUNCTION
     Route: 065
  9. SYMBICORT [Concomitant]
     Indication: ASTHMA
     Route: 065

REACTIONS (1)
  - WHITE BLOOD CELL COUNT INCREASED [None]
